FAERS Safety Report 24545423 (Version 2)
Quarter: 2024Q4

REPORT INFORMATION
  Report Type: Spontaneous
  Country: FR (occurrence: FR)
  Receive Date: 20241024
  Receipt Date: 20241203
  Transmission Date: 20250114
  Serious: Yes (Hospitalization, Other)
  Sender: FRESENIUS KABI
  Company Number: FR-009507513-2410FRA001603

PATIENT
  Sex: Female
  Weight: 64 kg

DRUGS (7)
  1. CARBOPLATIN [Suspect]
     Active Substance: CARBOPLATIN
     Indication: Adenocarcinoma of the cervix
     Dosage: UNK
  2. KEYTRUDA [Suspect]
     Active Substance: PEMBROLIZUMAB
     Indication: Adenocarcinoma of the cervix
     Dosage: UNK?FORM: SOLUTION FOR INJECTION
  3. KEYTRUDA [Suspect]
     Active Substance: PEMBROLIZUMAB
     Dosage: UNIT DOSE: 200MG?DURATION OF DRUG ADMINISTRATION: 1 DAY?FORM: SOLUTION FOR INJECTION?THERAPY START D
  4. TAXOL [Suspect]
     Active Substance: PACLITAXEL
     Indication: Adenocarcinoma of the cervix
     Dosage: UNK
  5. TAXOL [Suspect]
     Active Substance: PACLITAXEL
     Dosage: UNK
  6. AVASTIN [Suspect]
     Active Substance: BEVACIZUMAB
     Indication: Adenocarcinoma of the cervix
     Dosage: UNK
  7. AVASTIN [Suspect]
     Active Substance: BEVACIZUMAB
     Dosage: UNK

REACTIONS (8)
  - Asphyxia [Recovered/Resolved]
  - Ill-defined disorder [Recovered/Resolved]
  - Back pain [Recovered/Resolved]
  - Anxiety [Recovered/Resolved with Sequelae]
  - Agitation [Recovered/Resolved with Sequelae]
  - Tachycardia [Recovered/Resolved with Sequelae]
  - Blood pressure abnormal [Recovered/Resolved with Sequelae]
  - Dyspnoea [Recovered/Resolved]

NARRATIVE: CASE EVENT DATE: 20240925
